FAERS Safety Report 7781442-3 (Version None)
Quarter: 2011Q3

REPORT INFORMATION
  Report Type: 
  Country: None (occurrence: None)
  Receive Date: 20110927
  Receipt Date: 20110919
  Transmission Date: 20111222
  Serious: Yes (Hospitalization)
  Sender: FDA-Public Use
  Company Number: PHHY2011SE83426

PATIENT
  Sex: Female

DRUGS (15)
  1. RIFAMPICIN [Suspect]
     Route: 048
     Dates: end: 20110607
  2. METOPROLOL TARTRATE [Concomitant]
  3. OXAZEPAM [Concomitant]
     Dosage: 5 MG, UNK
  4. FUCIDINE CAP [Suspect]
     Route: 048
     Dates: end: 20110607
  5. ZOPIKLON [Concomitant]
  6. MIRTAZAPINE [Concomitant]
  7. XYLOPROCT [Concomitant]
  8. CILAXRAL [Concomitant]
     Dosage: 7.5 MG/ML, UNK
     Route: 048
  9. ACETAMINOPHEN [Concomitant]
  10. LEVOTHYROXINE SODIUM [Concomitant]
     Dosage: 75 MG, UNK
  11. TRAMADOL HCL [Concomitant]
  12. VANCOMYCIN HCL [Concomitant]
  13. FUROSEMIDE [Concomitant]
     Dosage: 20 MG, UNK
  14. OMEPRAZOLE [Concomitant]
  15. PREDNISOLONE [Concomitant]

REACTIONS (3)
  - NAUSEA [None]
  - VOMITING [None]
  - ASTHENIA [None]
